FAERS Safety Report 26054888 (Version 1)
Quarter: 2025Q4

REPORT INFORMATION
  Report Type: Spontaneous
  Country: BR (occurrence: BR)
  Receive Date: 20251117
  Receipt Date: 20251117
  Transmission Date: 20260119
  Serious: Yes (Other)
  Sender: PFIZER
  Company Number: BR-PFIZER INC-PV202500134427

PATIENT
  Age: 36 Year
  Sex: Male

DRUGS (5)
  1. TALIGLUCERASE ALFA [Suspect]
     Active Substance: TALIGLUCERASE ALFA
     Indication: Gaucher^s disease
     Dosage: 26 IU/KG, EVERY 15 DAYS
     Dates: start: 20160216
  2. KEPPRA [Concomitant]
     Active Substance: LEVETIRACETAM
     Dosage: 250 MG
  3. VALPROATE SODIUM [Concomitant]
     Active Substance: VALPROATE SODIUM
     Dosage: 500 MG
  4. CLONAZEPAM [Concomitant]
     Active Substance: CLONAZEPAM
  5. LAMOTRIGINE [Concomitant]
     Active Substance: LAMOTRIGINE
     Dosage: 100 MG

REACTIONS (2)
  - Seizure [Recovering/Resolving]
  - Somnolence [Recovering/Resolving]
